FAERS Safety Report 7105488-3 (Version None)
Quarter: 2010Q4

REPORT INFORMATION
  Report Type: 
  Country: None (occurrence: None)
  Receive Date: 20101116
  Receipt Date: 20101104
  Transmission Date: 20110411
  Serious: Yes (Hospitalization, Other)
  Sender: FDA-Public Use
  Company Number: US-ROCHE-631712

PATIENT
  Sex: Male
  Weight: 71.7 kg

DRUGS (2)
  1. ACCUTANE [Suspect]
     Route: 048
     Dates: start: 19970101, end: 19981201
  2. ACCUTANE [Suspect]
     Route: 048
     Dates: start: 20001130, end: 20010601

REACTIONS (8)
  - COLITIS [None]
  - CROHN'S DISEASE [None]
  - GASTROINTESTINAL DISORDER [None]
  - ILEAL FISTULA [None]
  - ILEAL STENOSIS [None]
  - INFLAMMATORY BOWEL DISEASE [None]
  - LOWER EXTREMITY MASS [None]
  - SMALL INTESTINAL OBSTRUCTION [None]
